FAERS Safety Report 9197922 (Version 2)
Quarter: 2013Q2

REPORT INFORMATION
  Report Type: Spontaneous
  Country: FR (occurrence: FR)
  Receive Date: 20130328
  Receipt Date: 20130401
  Transmission Date: 20140414
  Serious: Yes (Hospitalization)
  Sender: FDA-Public Use
  Company Number: FR-B.I. PHARMACEUTICALS,INC./RIDGEFIELD-2013-FF-00792FF

PATIENT
  Age: 73 Year
  Sex: Female

DRUGS (5)
  1. PRADAXA [Suspect]
     Indication: CEREBROVASCULAR ACCIDENT
     Dosage: 300 MG
     Route: 048
     Dates: start: 20130111, end: 20130118
  2. INEXIUM [Suspect]
     Dosage: 40 MG
     Route: 048
     Dates: start: 20130109, end: 20130118
  3. STILNOX [Suspect]
     Route: 048
     Dates: start: 20130110, end: 20130118
  4. SIMVASTATINE [Suspect]
     Dosage: 20 MG
     Route: 048
     Dates: start: 20130111, end: 20130118
  5. ATACAND [Concomitant]
     Indication: HYPERTENSION
     Route: 048

REACTIONS (3)
  - Rash erythematous [Recovered/Resolved]
  - Pyrexia [Recovered/Resolved]
  - Renal failure acute [Recovered/Resolved]
